FAERS Safety Report 25099816 (Version 1)
Quarter: 2025Q1

REPORT INFORMATION
  Report Type: Report from Study
  Country: US (occurrence: US)
  Receive Date: 20250320
  Receipt Date: 20250320
  Transmission Date: 20250409
  Serious: Yes (Hospitalization, Other)
  Sender: AMGEN
  Company Number: US-AMGEN-USANI2025051614

PATIENT
  Age: 41 Year
  Sex: Female

DRUGS (4)
  1. TARLATAMAB [Suspect]
     Active Substance: TARLATAMAB
     Indication: Neuroendocrine tumour
     Route: 040
     Dates: start: 20250310
  2. DEXAMETHASONE [Concomitant]
     Active Substance: DEXAMETHASONE
     Route: 040
     Dates: start: 20250310
  3. TOCILIZUMAB [Concomitant]
     Active Substance: TOCILIZUMAB
     Route: 040
     Dates: start: 20250310
  4. SODIUM CHLORIDE [Concomitant]
     Active Substance: SODIUM CHLORIDE
     Dates: start: 20250310

REACTIONS (1)
  - Cytokine release syndrome [Unknown]

NARRATIVE: CASE EVENT DATE: 20250310
